FAERS Safety Report 25209701 (Version 1)
Quarter: 2025Q2

REPORT INFORMATION
  Report Type: Spontaneous
  Country: US (occurrence: US)
  Receive Date: 20250417
  Receipt Date: 20250417
  Transmission Date: 20250717
  Serious: Yes (Hospitalization)
  Sender: SANDOZ
  Company Number: US-SANDOZ-SDZ2025US023450

PATIENT
  Sex: Female

DRUGS (1)
  1. ZARXIO [Suspect]
     Active Substance: FILGRASTIM-SNDZ
     Indication: Neutropenia
     Route: 065
     Dates: start: 20240724

REACTIONS (5)
  - Blood sodium decreased [Unknown]
  - Vertigo [Unknown]
  - Ear disorder [Unknown]
  - Cardiac disorder [Unknown]
  - Fall [Unknown]
